FAERS Safety Report 6994597-5 (Version None)
Quarter: 2010Q3

REPORT INFORMATION
  Report Type: 
  Country: None (occurrence: None)
  Receive Date: 20100916
  Receipt Date: 20100916
  Transmission Date: 20110219
  Serious: Yes (Hospitalization)
  Sender: FDA-Public Use
  Company Number: None

PATIENT
  Age: 71 Year
  Sex: Male
  Weight: 59.6 kg

DRUGS (1)
  1. IRINOTECAN HCL [Suspect]
     Indication: COLON CANCER METASTATIC
     Dosage: 230 MG/M2 EVERY 14 DAYS IV
     Route: 042
     Dates: start: 20100511

REACTIONS (2)
  - HAEMATURIA [None]
  - RENAL FAILURE [None]
